FAERS Safety Report 24305792 (Version 1)
Quarter: 2024Q3

REPORT INFORMATION
  Report Type: Report from Study
  Country: CN (occurrence: CN)
  Receive Date: 20240911
  Receipt Date: 20240911
  Transmission Date: 20241017
  Serious: Yes (Hospitalization)
  Sender: ROCHE
  Company Number: CN-ROCHE-10000072929

PATIENT
  Age: 56 Year
  Sex: Female

DRUGS (11)
  1. ADO-TRASTUZUMAB EMTANSINE [Suspect]
     Active Substance: ADO-TRASTUZUMAB EMTANSINE
     Indication: Invasive breast carcinoma
     Route: 065
     Dates: start: 20230517
  2. ADO-TRASTUZUMAB EMTANSINE [Suspect]
     Active Substance: ADO-TRASTUZUMAB EMTANSINE
     Dosage: SUBSEQUENT DOSES RECEIVED ON: 24/JUL/2023,
     Route: 065
     Dates: start: 20230607
  3. ADO-TRASTUZUMAB EMTANSINE [Suspect]
     Active Substance: ADO-TRASTUZUMAB EMTANSINE
     Route: 065
     Dates: start: 20230701
  4. ADO-TRASTUZUMAB EMTANSINE [Suspect]
     Active Substance: ADO-TRASTUZUMAB EMTANSINE
     Dosage: SUBSEQUENT DOSES RECEIVED ON: 14/SEP/2023, 07/OCT/2023,
     Route: 065
     Dates: start: 20230823
  5. ADO-TRASTUZUMAB EMTANSINE [Suspect]
     Active Substance: ADO-TRASTUZUMAB EMTANSINE
     Dosage: SUBSEQUENT DOSES RECEIVED ON: 20/NOV/2023, 12/DEC/2023
     Route: 065
     Dates: start: 20231030
  6. ADO-TRASTUZUMAB EMTANSINE [Suspect]
     Active Substance: ADO-TRASTUZUMAB EMTANSINE
     Route: 065
     Dates: start: 20240102
  7. ADO-TRASTUZUMAB EMTANSINE [Suspect]
     Active Substance: ADO-TRASTUZUMAB EMTANSINE
     Dosage: SUBSEQUENT DOSES RECEIVED ON : 15/FEB/2024, 07/MAR/2024, 26/MAR/2024, 18/APR/2024, 09/MAY/2024; 21/J
     Route: 065
     Dates: start: 20240124
  8. RESERPINE [Concomitant]
     Active Substance: RESERPINE
  9. ACARBOSE [Concomitant]
     Active Substance: ACARBOSE
  10. Compound glycyrrhizin [Concomitant]
  11. GLUTATHIONE [Concomitant]
     Active Substance: GLUTATHIONE
     Dates: start: 20230812, end: 20230817

REACTIONS (1)
  - Metastasis [Not Recovered/Not Resolved]

NARRATIVE: CASE EVENT DATE: 20230724
